FAERS Safety Report 8447850-2 (Version None)
Quarter: 2012Q2

REPORT INFORMATION
  Report Type: 
  Country: None (occurrence: None)
  Receive Date: 20120619
  Receipt Date: 20120612
  Transmission Date: 20120825
  Serious: Yes (Hospitalization, Other)
  Sender: FDA-Public Use
  Company Number: CO-PFIZER INC-2012143757

PATIENT
  Age: 46 Year
  Sex: Female

DRUGS (10)
  1. EUTHYROX [Concomitant]
     Indication: FIBROMYALGIA
     Dosage: 50 MG ONE DAY
     Route: 048
     Dates: start: 20060101
  2. ENALAPRIL [Concomitant]
     Indication: FIBROMYALGIA
     Dosage: 5 MG EVERY 12 HOURS
     Dates: start: 20060101
  3. EUTHYROX [Concomitant]
     Indication: MYASTHENIA GRAVIS
     Dosage: 100 MG ANOTHER DAY
     Route: 048
     Dates: start: 20060101
  4. MESTINON [Concomitant]
     Indication: FIBROMYALGIA
     Dosage: 60 MG EVERY 6 HOURS
     Route: 048
     Dates: start: 20060101
  5. ENALAPRIL [Concomitant]
     Indication: MYASTHENIA GRAVIS
  6. MESTINON [Concomitant]
     Indication: MYASTHENIA GRAVIS
  7. LYRICA [Suspect]
     Indication: MYASTHENIA GRAVIS
  8. PRISTIQ [Suspect]
     Dosage: 50 MG ONCE A DAY AT MORNING
     Route: 048
     Dates: start: 20060101
  9. LYRICA [Suspect]
     Indication: FIBROMYALGIA
     Dosage: 75 MG, AS NEEDED
     Route: 048
     Dates: start: 20060101, end: 20120530
  10. OMEPRAZOLE [Concomitant]
     Dosage: 20 MG, 1X/DAY
     Route: 048

REACTIONS (4)
  - AMNESIA [None]
  - ARTHRALGIA [None]
  - BRAIN OEDEMA [None]
  - PAIN IN EXTREMITY [None]
